FAERS Safety Report 14607050 (Version 1)
Quarter: 2018Q1

REPORT INFORMATION
  Report Type: Spontaneous
  Country: US (occurrence: US)
  Receive Date: 20180307
  Receipt Date: 20180307
  Transmission Date: 20180509
  Serious: Yes (Hospitalization, Disabling)
  Sender: FDA-Public Use
  Company Number: US-JNJFOC-20180303111

PATIENT
  Age: 66 Year
  Sex: Male

DRUGS (1)
  1. INVOKANA [Suspect]
     Active Substance: CANAGLIFLOZIN
     Indication: TYPE 2 DIABETES MELLITUS
     Route: 048
     Dates: start: 20141231

REACTIONS (6)
  - Osteomyelitis [Recovering/Resolving]
  - Foot amputation [Unknown]
  - Leg amputation [Recovering/Resolving]
  - Foot amputation [Recovering/Resolving]
  - Peripheral ischaemia [Recovering/Resolving]
  - Gangrene [Recovering/Resolving]

NARRATIVE: CASE EVENT DATE: 201610
